FAERS Safety Report 8279810 (Version 2)
Quarter: 2012Q4

REPORT INFORMATION
  Report Type: 
  Country: IL (occurrence: IL)
  Receive Date: 20111208
  Receipt Date: 20121025
  Transmission Date: 20130627
  Serious: Yes (Other)
  Sender: FDA-Public Use
  Company Number: IL-JNJFOC-20111112330

PATIENT
  Age: 19 Year
  Sex: Female

DRUGS (6)
  1. REMICADE [Suspect]
     Indication: CROHN^S DISEASE
     Route: 042
  2. REMICADE [Suspect]
     Indication: CROHN^S DISEASE
     Dosage: it was third infusion
     Route: 042
  3. REMICADE [Suspect]
     Indication: CROHN^S DISEASE
     Route: 042
     Dates: start: 201104
  4. HYDROCORTISONE [Concomitant]
     Indication: PREMEDICATION
     Route: 065
  5. AHISTON [Concomitant]
     Indication: PREMEDICATION
     Route: 065
  6. PARACETAMOL [Concomitant]
     Indication: PREMEDICATION
     Route: 065

REACTIONS (3)
  - Stridor [Unknown]
  - Suffocation feeling [Unknown]
  - Infusion related reaction [Unknown]
